FAERS Safety Report 24205687 (Version 1)
Quarter: 2024Q3

REPORT INFORMATION
  Report Type: Spontaneous
  Country: US (occurrence: None)
  Receive Date: 20240813
  Receipt Date: 20240813
  Transmission Date: 20241017
  Serious: Yes (Other)
  Sender: Public
  Company Number: None

PATIENT
  Sex: Female

DRUGS (11)
  1. LENALIDOMIDE [Suspect]
     Active Substance: LENALIDOMIDE
     Indication: Plasma cell myeloma
     Dosage: OTHER QUANTITY : TAKE 1 CAPSULE;?OTHER FREQUENCY : DAILY FOR 21 DAYS/7 DAYS OFF;?
     Route: 048
     Dates: start: 20240410
  2. BENZONATATE [Concomitant]
     Active Substance: BENZONATATE
  3. CEFUROXIME [Concomitant]
     Active Substance: CEFUROXIME
  4. CYCLOBENZAPRINE HYDROCHLORIDE [Concomitant]
     Active Substance: CYCLOBENZAPRINE HYDROCHLORIDE
  5. DARZALEX SOL [Concomitant]
  6. DEXAMETHASONE [Concomitant]
     Active Substance: DEXAMETHASONE
  7. FOSFOMYCIN [Concomitant]
     Active Substance: FOSFOMYCIN
  8. ONDANSETRON [Concomitant]
     Active Substance: ONDANSETRON
  9. PEPCID [Concomitant]
     Active Substance: FAMOTIDINE
  10. PRAMIPEXOLE [Concomitant]
     Active Substance: PRAMIPEXOLE\PRAMIPEXOLE DIHYDROCHLORIDE
  11. PROCHLORPER [Concomitant]

REACTIONS (1)
  - Hip surgery [None]
